FAERS Safety Report 6091817-9 (Version None)
Quarter: 2009Q1

REPORT INFORMATION
  Report Type: 
  Country: None (occurrence: None)
  Receive Date: 20090225
  Receipt Date: 20080715
  Transmission Date: 20090719
  Serious: No
  Sender: FDA-Public Use
  Company Number: A0737701A

PATIENT
  Age: 80 Year
  Sex: Male

DRUGS (2)
  1. VALTREX [Suspect]
     Dosage: 1G THREE TIMES PER DAY
     Route: 048
     Dates: start: 20080625, end: 20080702
  2. LIDA MANTLE HC [Concomitant]

REACTIONS (2)
  - DRUG INEFFECTIVE [None]
  - POST HERPETIC NEURALGIA [None]
